FAERS Safety Report 4728193-7 (Version None)
Quarter: 2005Q3

REPORT INFORMATION
  Report Type: 
  Country: None (occurrence: None)
  Receive Date: 20050727
  Receipt Date: 20050719
  Transmission Date: 20060218
  Serious: Yes (Hospitalization, Other)
  Sender: FDA-Public Use
  Company Number: FRWYE841119JUL05

PATIENT
  Age: 83 Year
  Sex: Female

DRUGS (10)
  1. EFFEXOR XR [Suspect]
     Indication: DEPRESSION
     Dosage: 37.5 MG 2X PER 1 DAY
     Route: 048
     Dates: end: 20050602
  2. ATARAX [Concomitant]
  3. STABLON          (TIANEPTINE) [Concomitant]
  4. IMOVANE             (ZOPICLONE) [Concomitant]
  5. COTAREG             (HYDROCHLOROTHIAZIDE/VALSARTAN) [Concomitant]
  6. NEXIUM [Concomitant]
  7. KARDEGIC (ACETYLSALICYLATE LYSINE) [Concomitant]
  8. ACETAMINOPHEN W/ PROPOXYPHENE HCL [Concomitant]
  9. FORLAX (MACROGOL) [Concomitant]
  10. TIAPRIDAL(TIAPRIDE) [Concomitant]

REACTIONS (5)
  - BLOOD GLUCOSE DECREASED [None]
  - DIET REFUSAL [None]
  - HYPERKALAEMIA [None]
  - HYPONATRAEMIA [None]
  - IMPAIRED SELF-CARE [None]
